FAERS Safety Report 9323811 (Version 1)
Quarter: 2013Q2

REPORT INFORMATION
  Report Type: Spontaneous
  Country: US (occurrence: None)
  Receive Date: 20130529
  Receipt Date: 20130529
  Transmission Date: 20140414
  Serious: Yes (Hospitalization, Other)
  Sender: FDA-Public Use
  Company Number: HA13-156-AE

PATIENT
  Age: 45 Year
  Sex: Female
  Weight: 62.6 kg

DRUGS (2)
  1. SMZ / TMP [Suspect]
     Indication: POSTOPERATIVE CARE
     Route: 048
     Dates: start: 20130422, end: 20130425
  2. SMZ / TMP [Suspect]
     Indication: CYST REMOVAL
     Route: 048
     Dates: start: 20130422, end: 20130425

REACTIONS (6)
  - Hypersensitivity [None]
  - Anaphylactic shock [None]
  - Dehydration [None]
  - Pain of skin [None]
  - Pancreatitis [None]
  - Drug reaction with eosinophilia and systemic symptoms [None]
